FAERS Safety Report 4945185-3 (Version None)
Quarter: 2006Q1

REPORT INFORMATION
  Report Type: 
  Country: None (occurrence: None)
  Receive Date: 20060316
  Receipt Date: 20060307
  Transmission Date: 20060701
  Serious: Yes (Death, Hospitalization)
  Sender: FDA-Public Use
  Company Number: NSADSS2002041916

PATIENT
  Sex: Female
  Weight: 51.71 kg

DRUGS (21)
  1. RISPERDAL [Suspect]
     Dosage: AT BEDTIME
     Route: 048
     Dates: start: 19960912, end: 19990102
  2. RISPERDAL [Suspect]
     Indication: BIPOLAR II DISORDER
     Dosage: AT BEDTIME
     Route: 048
     Dates: start: 19960912, end: 19990102
  3. LANOXIN [Concomitant]
  4. SERZONE [Concomitant]
     Route: 048
  5. SERZONE [Concomitant]
     Route: 048
  6. SERZONE [Concomitant]
     Route: 048
  7. HUMALIN INSULIN [Concomitant]
     Route: 058
  8. TRENTAL [Concomitant]
     Route: 048
  9. DITROPAN [Concomitant]
     Route: 048
  10. ANTIVERT [Concomitant]
     Route: 048
  11. ANTIVERT [Concomitant]
     Route: 048
  12. RITALIN [Concomitant]
     Route: 048
  13. RITALIN [Concomitant]
     Route: 048
  14. FLORINEF [Concomitant]
     Route: 048
  15. ULTRAM [Concomitant]
  16. PARLODEL [Concomitant]
  17. CORGARD [Concomitant]
  18. CLARITIN [Concomitant]
  19. GLUCOTROL [Concomitant]
  20. LOMOTIL [Concomitant]
  21. LOMOTIL [Concomitant]

REACTIONS (13)
  - ATRIAL FIBRILLATION [None]
  - CARDIAC FAILURE CONGESTIVE [None]
  - CARDIO-RESPIRATORY ARREST [None]
  - CEREBROVASCULAR ACCIDENT [None]
  - CEREBROVASCULAR DISORDER [None]
  - CORONARY ARTERY DISEASE [None]
  - EXTERNAL EAR CELLULITIS [None]
  - HYPOKALAEMIA [None]
  - MUSCLE CONTRACTIONS INVOLUNTARY [None]
  - NEUROLEPTIC MALIGNANT SYNDROME [None]
  - PNEUMONIA ASPIRATION [None]
  - SEPSIS [None]
  - URINARY TRACT INFECTION [None]
